FAERS Safety Report 4380673-2 (Version None)
Quarter: 2004Q2

REPORT INFORMATION
  Report Type: 
  Country: None (occurrence: None)
  Receive Date: 20040616
  Receipt Date: 20040602
  Transmission Date: 20050107
  Serious: Yes (Other)
  Sender: FDA-Public Use
  Company Number: 2004216827JP

PATIENT
  Age: 75 Year
  Sex: Male

DRUGS (16)
  1. ESTRACYT(ESTRAMUSTINE PHOSPHATE) CAPSULE [Suspect]
     Indication: PROSTATE CANCER
     Dosage: 560 MG, ORAL
     Route: 048
     Dates: start: 19990201, end: 20030601
  2. ESTRACYT(ESTRAMUSTINE PHOSPHATE) CAPSULE [Suspect]
     Indication: PROSTATE CANCER
     Dosage: 560 MG, ORAL
     Route: 048
     Dates: start: 20030916, end: 20040127
  3. LEUPRORELIN ACETATE (LEUPRORELIN ACETATE (LEUPRORELIN ACETATE) [Suspect]
     Indication: PROSTATE CANCER
     Dosage: 3.75 MG, SUBCUTANEOUS
     Route: 058
     Dates: start: 20011101
  4. TWINLINE [Concomitant]
  5. FUROSEMIDE [Concomitant]
  6. CLARITHROMYCIN [Concomitant]
  7. ATROPINE SULFATE [Concomitant]
  8. OXATOMIDE [Concomitant]
  9. MAGNESIUM OXIDE [Concomitant]
  10. CARBOCISTEINE [Concomitant]
  11. AMBROXOL HYDROCHLORIDE [Concomitant]
  12. BROMPHEZINE HYDROCHLORIDE [Concomitant]
  13. SALBUTAMOL SULFTE (SALBUTAMOL SULFATE) [Concomitant]
  14. SODIUM CHLORIDE INJ [Concomitant]
  15. BIOFERIN (STREPTOCOCCUS FAECALIS, BACILLUS SUBTILS) [Concomitant]
  16. ARTIFICIAL TEARS [Concomitant]

REACTIONS (2)
  - PLEURAL EFFUSION [None]
  - PNEUMONIA [None]
